FAERS Safety Report 5022650-4 (Version None)
Quarter: 2006Q2

REPORT INFORMATION
  Report Type: 
  Country: None (occurrence: None)
  Receive Date: 20060609
  Receipt Date: 20060601
  Transmission Date: 20061013
  Serious: Yes (Hospitalization)
  Sender: FDA-Public Use
  Company Number: FR-ABBOTT-06P-056-0334847-00

PATIENT
  Age: 40 Year
  Sex: Male
  Weight: 81 kg

DRUGS (4)
  1. ZECLAR [Suspect]
     Indication: DRUG USE FOR UNKNOWN INDICATION
     Route: 048
     Dates: start: 20051229, end: 20051229
  2. TIAPROFENIC ACID [Suspect]
     Indication: DRUG USE FOR UNKNOWN INDICATION
     Route: 048
     Dates: start: 20051229, end: 20051229
  3. CLOBUTINOL [Suspect]
     Indication: DRUG USE FOR UNKNOWN INDICATION
     Route: 048
     Dates: start: 20051229, end: 20051229
  4. CODEINE+ERYSIMUM+PHOLCODINE [Suspect]
     Indication: DRUG USE FOR UNKNOWN INDICATION
     Route: 048
     Dates: start: 20051229, end: 20051229

REACTIONS (5)
  - ANGIONEUROTIC OEDEMA [None]
  - APHONIA [None]
  - PRURITUS [None]
  - RESPIRATORY DISTRESS [None]
  - URTICARIA [None]
